FAERS Safety Report 8488978-0 (Version None)
Quarter: 2012Q3

REPORT INFORMATION
  Report Type: 
  Country: None (occurrence: None)
  Receive Date: 20120705
  Receipt Date: 20120627
  Transmission Date: 20120928
  Serious: Yes (Death, Hospitalization)
  Sender: FDA-Public Use
  Company Number: US-PFIZER INC-HQWYE958714DEC04

PATIENT
  Sex: Male

DRUGS (3)
  1. CORDARONE [Suspect]
     Dosage: UNK
  2. AMIODARONE HCL [Suspect]
     Dosage: UNK
  3. PACERONE [Suspect]
     Dosage: UNK

REACTIONS (6)
  - PNEUMONIA [None]
  - ACUTE RESPIRATORY DISTRESS SYNDROME [None]
  - PULMONARY TOXICITY [None]
  - RESPIRATORY FAILURE [None]
  - DYSPNOEA [None]
  - NASOPHARYNGITIS [None]
